FAERS Safety Report 16128662 (Version 2)
Quarter: 2019Q2

REPORT INFORMATION
  Report Type: Spontaneous
  Country: SE (occurrence: SE)
  Receive Date: 20190328
  Receipt Date: 20190611
  Transmission Date: 20190711
  Serious: Yes (Other)
  Sender: FDA-Public Use
  Company Number: SE-MYLANLABS-2019M1027879

PATIENT
  Age: 53 Year
  Sex: Female

DRUGS (1)
  1. FENANTOIN MEDA 100 MG TABLETTER [Suspect]
     Active Substance: PHENYTOIN
     Indication: TRIGEMINAL NEURALGIA
     Dosage: UNK
     Dates: end: 20190119

REACTIONS (16)
  - Lymphadenopathy [Unknown]
  - Pruritus [Unknown]
  - Blood bilirubin decreased [Unknown]
  - Fatigue [Unknown]
  - Rash [Unknown]
  - Constipation [Unknown]
  - White blood cell count decreased [Unknown]
  - Arthralgia [Unknown]
  - Platelet count decreased [Unknown]
  - Pyrexia [Unknown]
  - Nausea [Unknown]
  - Blood albumin decreased [Unknown]
  - Influenza like illness [Unknown]
  - Myalgia [Unknown]
  - Product use in unapproved indication [Unknown]
  - Hepatic enzyme increased [Unknown]

NARRATIVE: CASE EVENT DATE: 20190114
